FAERS Safety Report 24608124 (Version 2)
Quarter: 2025Q3

REPORT INFORMATION
  Report Type: Spontaneous
  Country: US (occurrence: US)
  Receive Date: 20241112
  Receipt Date: 20250810
  Transmission Date: 20251020
  Serious: No
  Sender: ALEXION PHARMACEUTICALS
  Company Number: US-AstraZeneca-CH-00745108A

PATIENT
  Sex: Female

DRUGS (2)
  1. FARXIGA [Suspect]
     Active Substance: DAPAGLIFLOZIN PROPANEDIOL
  2. CINNAMON [Concomitant]
     Active Substance: CINNAMON
     Route: 065

REACTIONS (4)
  - Fungal infection [Unknown]
  - Blood urine present [Unknown]
  - Product dose omission issue [Unknown]
  - Glycosylated haemoglobin decreased [Unknown]
